FAERS Safety Report 19928123 (Version 2)
Quarter: 2021Q4

REPORT INFORMATION
  Report Type: Other
  Country: US (occurrence: US)
  Receive Date: 20211007
  Receipt Date: 20211015
  Transmission Date: 20220303
  Serious: No
  Sender: FDA-Public Use
  Company Number: US-NEUROCRINE BIOSCIENCES INC.-2021NBI05546

PATIENT

DRUGS (4)
  1. INGREZZA [Suspect]
     Active Substance: VALBENAZINE
     Indication: Tardive dyskinesia
     Dosage: 80 MILLIGRAM, QD
     Route: 048
  2. INGREZZA [Suspect]
     Active Substance: VALBENAZINE
     Dosage: 40 MILLIGRAM, QD
     Route: 048
     Dates: start: 20210408, end: 20210910
  3. ZYPREXA [Concomitant]
     Active Substance: OLANZAPINE
     Dosage: UNK
  4. COGENTIN [Concomitant]
     Active Substance: BENZTROPINE MESYLATE
     Dosage: UNK

REACTIONS (2)
  - Tardive dyskinesia [Unknown]
  - Therapeutic product effect decreased [Unknown]

NARRATIVE: CASE EVENT DATE: 20210101
